FAERS Safety Report 13941095 (Version 3)
Quarter: 2017Q3

REPORT INFORMATION
  Report Type: Spontaneous
  Country: TW (occurrence: TW)
  Receive Date: 20170906
  Receipt Date: 20170920
  Transmission Date: 20171127
  Serious: Yes (Death, Hospitalization)
  Sender: FDA-Public Use
  Company Number: TW-ABBVIE-17P-153-2088904-00

PATIENT
  Age: 65 Year
  Sex: Male

DRUGS (4)
  1. VIEKIRAX [Suspect]
     Active Substance: OMBITASVIR\PARITAPREVIR\RITONAVIR
     Indication: CHRONIC HEPATITIS C
     Dosage: 12 WEEKS OF THERAPY
     Route: 048
     Dates: start: 201705, end: 20170818
  2. EXVIERA [Suspect]
     Active Substance: DASABUVIR
     Indication: CHRONIC HEPATITIS C
     Dosage: 12 WEEKS OF THERAPY
     Route: 048
     Dates: start: 201705, end: 20170818
  3. INSULIN [Concomitant]
     Active Substance: INSULIN NOS
     Indication: DIABETES MELLITUS
     Dosage: FOR A LONG TIME
  4. RIBAVIRIN. [Concomitant]
     Active Substance: RIBAVIRIN
     Indication: HEPATITIS C
     Dates: end: 201705

REACTIONS (15)
  - Haemorrhage [Unknown]
  - Blood bilirubin increased [Unknown]
  - Bilirubin conjugated increased [Unknown]
  - Renal function test abnormal [Unknown]
  - Shock [Fatal]
  - Aspartate aminotransferase increased [Unknown]
  - Hepatitis B [Unknown]
  - Abdominal pain [Unknown]
  - Cholelithiasis [Unknown]
  - Asthenia [Unknown]
  - Hepatitis B [Fatal]
  - Blood bilirubin increased [Recovered/Resolved]
  - Alanine aminotransferase increased [Unknown]
  - Nausea [Unknown]
  - Hepatic failure [Unknown]

NARRATIVE: CASE EVENT DATE: 201708
